FAERS Safety Report 8968726 (Version 1)
Quarter: 2012Q4

REPORT INFORMATION
  Report Type: 
  Country: US (occurrence: US)
  Receive Date: 20121218
  Receipt Date: 20121218
  Transmission Date: 20130627
  Serious: Yes (Other)
  Sender: FDA-Public Use
  Company Number: US-BRISTOL-MYERS SQUIBB COMPANY-16718199

PATIENT
  Age: 21 Year
  Sex: Female

DRUGS (2)
  1. ABILIFY TABS [Suspect]
     Indication: ANXIETY
     Dosage: Rx# 6113169
     Route: 048
     Dates: start: 20120618, end: 20120618
  2. ABILIFY TABS [Suspect]
     Indication: DEPRESSION
     Dosage: Rx# 6113169
     Route: 048
     Dates: start: 20120618, end: 20120618

REACTIONS (5)
  - Chest discomfort [Recovered/Resolved]
  - Dizziness [Recovered/Resolved]
  - Arthralgia [Recovered/Resolved]
  - Dyspnoea [Recovered/Resolved]
  - Influenza like illness [Recovered/Resolved]
